FAERS Safety Report 4996423-2 (Version None)
Quarter: 2006Q2

REPORT INFORMATION
  Report Type: 
  Country: None (occurrence: None)
  Receive Date: 20060505
  Receipt Date: 20060425
  Transmission Date: 20061013
  Serious: Yes (Hospitalization)
  Sender: FDA-Public Use
  Company Number: 2006021356

PATIENT
  Age: 55 Year

DRUGS (6)
  1. CARDENALIN (DOXAZOSIN) [Suspect]
     Indication: ILL-DEFINED DISORDER
     Dosage: 4 MG (DAILY), ORAL
     Route: 048
     Dates: start: 20060124, end: 20060125
  2. BLINDED THERAPY (BLINDED THERAPY) [Suspect]
     Indication: DIABETIC NEPHROPATHY
     Dosage: 10 MG, ORAL; 20 MG, ORAL; 40 MG, OPHTHALMIC
     Dates: start: 20050808, end: 20051030
  3. BLINDED THERAPY (BLINDED THERAPY) [Suspect]
     Indication: DIABETIC NEPHROPATHY
     Dosage: 10 MG, ORAL; 20 MG, ORAL; 40 MG, OPHTHALMIC
     Dates: start: 20051031, end: 20051218
  4. BLINDED THERAPY (BLINDED THERAPY) [Suspect]
     Indication: DIABETIC NEPHROPATHY
     Dosage: 10 MG, ORAL; 20 MG, ORAL; 40 MG, OPHTHALMIC
     Dates: start: 20051219
  5. AMLODIPINE BESILATE (AMLODIPINE) [Concomitant]
  6. ENALAPRIL MALEATE [Concomitant]

REACTIONS (6)
  - BLOOD PRESSURE INCREASED [None]
  - CEREBRAL ARTERY STENOSIS [None]
  - CEREBRAL INFARCTION [None]
  - DYSARTHRIA [None]
  - MOVEMENT DISORDER [None]
  - NAUSEA [None]
